FAERS Safety Report 21589538 (Version 1)
Quarter: 2022Q4

REPORT INFORMATION
  Report Type: Report from Study
  Country: US (occurrence: US)
  Receive Date: 20221114
  Receipt Date: 20221114
  Transmission Date: 20230112
  Serious: No
  Sender: FDA-Public Use
  Company Number: US-ABBVIE-22K-163-4525293-00

PATIENT
  Sex: Female

DRUGS (2)
  1. RINVOQ [Suspect]
     Active Substance: UPADACITINIB
     Indication: Rheumatoid arthritis
     Route: 048
     Dates: start: 20220823, end: 2022
  2. RINVOQ [Suspect]
     Active Substance: UPADACITINIB
     Indication: Rheumatoid arthritis
     Dosage: DOSE INCREASE
     Route: 048
     Dates: start: 2022

REACTIONS (5)
  - Rheumatoid arthritis [Recovered/Resolved]
  - Peripheral swelling [Unknown]
  - Pain in extremity [Unknown]
  - Skin tightness [Unknown]
  - Feeling hot [Unknown]

NARRATIVE: CASE EVENT DATE: 20220101
